FAERS Safety Report 15274939 (Version 2)
Quarter: 2018Q4

REPORT INFORMATION
  Report Type: Spontaneous
  Country: US (occurrence: US)
  Receive Date: 20180814
  Receipt Date: 20181018
  Transmission Date: 20190204
  Serious: No
  Sender: FDA-Public Use
  Company Number: US-009507513-1807USA007796

PATIENT
  Age: 14 Year
  Sex: Female

DRUGS (1)
  1. NEXPLANON [Suspect]
     Active Substance: ETONOGESTREL
     Indication: CONTRACEPTION
     Dosage: 1 ROD, ONCE
     Route: 059
     Dates: end: 20180713

REACTIONS (6)
  - Implant site discharge [Recovering/Resolving]
  - Pyrexia [Unknown]
  - Implant site swelling [Recovered/Resolved]
  - Implant site reaction [Recovering/Resolving]
  - Implant site erythema [Recovering/Resolving]
  - Hypersensitivity [Recovering/Resolving]
